FAERS Safety Report 13748702 (Version 1)
Quarter: 2017Q3

REPORT INFORMATION
  Report Type: Report from Study
  Country: US (occurrence: US)
  Receive Date: 20170713
  Receipt Date: 20170713
  Transmission Date: 20171127
  Serious: Yes (Other)
  Sender: FDA-Public Use
  Company Number: US-ROCHE-1952450

PATIENT
  Age: 45 Year
  Sex: Male

DRUGS (6)
  1. TECENTRIQ [Suspect]
     Active Substance: ATEZOLIZUMAB
     Indication: COLON CANCER
  2. DECADRON [Concomitant]
     Active Substance: DEXAMETHASONE
     Route: 042
     Dates: start: 20170630
  3. COTELLIC [Suspect]
     Active Substance: COBIMETINIB
     Indication: COLON CANCER
  4. DECADRON [Concomitant]
     Active Substance: DEXAMETHASONE
     Route: 042
     Dates: start: 20170623
  5. TECENTRIQ [Suspect]
     Active Substance: ATEZOLIZUMAB
     Indication: COLON CANCER
     Route: 065
     Dates: start: 20170612
  6. COTELLIC [Suspect]
     Active Substance: COBIMETINIB
     Indication: COLON CANCER
     Route: 065
     Dates: start: 20170612

REACTIONS (2)
  - Off label use [Unknown]
  - Liver function test increased [Unknown]

NARRATIVE: CASE EVENT DATE: 20170612
